FAERS Safety Report 6922509-9 (Version None)
Quarter: 2010Q3

REPORT INFORMATION
  Report Type: 
  Country: None (occurrence: None)
  Receive Date: 20100813
  Receipt Date: 20100803
  Transmission Date: 20110219
  Serious: Yes (Other)
  Sender: FDA-Public Use
  Company Number: FR-JNJFOC-20100800901

PATIENT
  Age: 34 Year
  Sex: Male

DRUGS (6)
  1. REMICADE [Suspect]
     Indication: PSORIATIC ARTHROPATHY
     Dosage: 13TH INFUSION
     Route: 042
  2. REMICADE [Suspect]
     Route: 042
  3. LEVOTHYROXINE SODIUM [Concomitant]
  4. SKENAN [Concomitant]
  5. POLARAMINE [Concomitant]
     Indication: PREMEDICATION
  6. PERFALGAN [Concomitant]
     Indication: PREMEDICATION

REACTIONS (5)
  - CHEST DISCOMFORT [None]
  - INFUSION RELATED REACTION [None]
  - MALAISE [None]
  - PARAESTHESIA [None]
  - RESPIRATORY DISORDER [None]
